FAERS Safety Report 7987335-0 (Version None)
Quarter: 2011Q4

REPORT INFORMATION
  Report Type: 
  Country: None (occurrence: None)
  Receive Date: 20111216
  Receipt Date: 20111018
  Transmission Date: 20120403
  Serious: Yes (Hospitalization)
  Sender: FDA-Public Use
  Company Number: US-BRISTOL-MYERS SQUIBB COMPANY-16171308

PATIENT
  Age: 24 Year
  Sex: Male

DRUGS (5)
  1. PROZAC [Concomitant]
  2. ABILIFY [Suspect]
  3. HALDOL [Concomitant]
  4. DEPAKOTE [Concomitant]
  5. COGENTIN [Concomitant]

REACTIONS (1)
  - DELIRIUM [None]
